FAERS Safety Report 11924831 (Version 2)
Quarter: 2017Q4

REPORT INFORMATION
  Report Type: Spontaneous
  Country: CA (occurrence: CA)
  Receive Date: 20160118
  Receipt Date: 20171128
  Transmission Date: 20180320
  Serious: Yes (Other)
  Sender: FDA-Public Use
  Company Number: CA-ABBVIE-16K-028-1539311-00

PATIENT
  Age: 48 Year
  Sex: Female

DRUGS (8)
  1. REMICADE [Suspect]
     Active Substance: INFLIXIMAB
     Indication: PRODUCT USED FOR UNKNOWN INDICATION
     Route: 042
     Dates: start: 20050302
  2. CICLOSPORIN [Suspect]
     Active Substance: CYCLOSPORINE
     Indication: PSORIASIS
     Route: 065
     Dates: start: 2009, end: 2011
  3. NEORAL [Suspect]
     Active Substance: CYCLOSPORINE
     Indication: PSORIASIS
     Route: 048
  4. NEORAL [Suspect]
     Active Substance: CYCLOSPORINE
     Route: 048
     Dates: start: 20050117, end: 20050220
  5. HUMIRA [Suspect]
     Active Substance: ADALIMUMAB
     Indication: PRODUCT USED FOR UNKNOWN INDICATION
     Route: 058
  6. REMICADE [Suspect]
     Active Substance: INFLIXIMAB
     Route: 042
  7. SECUKINUMAB. [Suspect]
     Active Substance: SECUKINUMAB
     Indication: PSORIASIS
     Route: 058
     Dates: start: 20150824
  8. NEORAL [Suspect]
     Active Substance: CYCLOSPORINE
     Indication: PSORIASIS
     Route: 048
     Dates: start: 20050117, end: 20050220

REACTIONS (20)
  - Serum ferritin decreased [Unknown]
  - Haemoglobin decreased [Unknown]
  - Arthritis [Unknown]
  - Urticaria [Recovered/Resolved]
  - Infection [Unknown]
  - Erythema [Recovered/Resolved]
  - Blood iron decreased [Recovered/Resolved]
  - Blood pressure increased [Unknown]
  - Glucose tolerance impaired [Recovered/Resolved]
  - Psoriasis [Recovered/Resolved]
  - Localised oedema [Recovered/Resolved]
  - Guttate psoriasis [Unknown]
  - Glycosylated haemoglobin increased [Unknown]
  - Blood alkaline phosphatase increased [Unknown]
  - Psoriasis [Recovering/Resolving]
  - Infection [Recovered/Resolved]
  - Pneumonia [Recovered/Resolved]
  - Bronchitis [Recovered/Resolved]
  - Skin irritation [Unknown]
  - Glucose tolerance impaired [Unknown]

NARRATIVE: CASE EVENT DATE: 20050224
